FAERS Safety Report 8947251 (Version 1)
Quarter: 2012Q4

REPORT INFORMATION
  Report Type: Report from Study
  Country: NL (occurrence: NL)
  Receive Date: 20121205
  Receipt Date: 20121205
  Transmission Date: 20130627
  Serious: Yes (Life-Threatening, Hospitalization)
  Sender: FDA-Public Use
  Company Number: NL-PFIZER INC-2012300651

PATIENT
  Age: 50 Year
  Sex: Male

DRUGS (2)
  1. EPIRUBICIN HCL [Suspect]
     Indication: INVASIVE BLADDER CANCER
     Dosage: 80 mg (in saline)
     Route: 043
  2. EPIRUBICIN HCL [Suspect]
     Indication: CHEMOTHERAPY

REACTIONS (4)
  - Extravasation [Unknown]
  - Bladder perforation [Unknown]
  - Abdominal pain [Unknown]
  - Pelvic pain [Unknown]
